FAERS Safety Report 16435280 (Version 3)
Quarter: 2019Q2

REPORT INFORMATION
  Report Type: Spontaneous
  Country: US (occurrence: US)
  Receive Date: 20190614
  Receipt Date: 20190624
  Transmission Date: 20190711
  Serious: Yes (Hospitalization)
  Sender: FDA-Public Use
  Company Number: US-PFIZER INC-2019250162

PATIENT
  Age: 45 Year
  Sex: Male

DRUGS (6)
  1. GABAPENTIN. [Suspect]
     Active Substance: GABAPENTIN
     Dosage: 21600 MG, UNK (CONTAINED 6%)
     Route: 048
  2. AMITRIPTYLINE [Suspect]
     Active Substance: AMITRIPTYLINE
     Dosage: 7200 MG, UNK (CONTAINED 2%)
     Route: 048
  3. MELOXICAM. [Suspect]
     Active Substance: MELOXICAM
     Dosage: 1800 MG, UNK (0.5%, 360 G DISPENSED)
     Route: 048
  4. PRILOCAINE [Suspect]
     Active Substance: PRILOCAINE
     Dosage: 6300 MG, UNK  (CONTAINED 1.75%)
     Route: 048
  5. LIDOCAINE. [Suspect]
     Active Substance: LIDOCAINE
     Dosage: 6300 MG, UNK (CONTAINED 1.75%)
     Route: 048
  6. BACLOFEN. [Suspect]
     Active Substance: BACLOFEN
     Dosage: 7200 MG, UNK (CONTAINED 2%)
     Route: 048

REACTIONS (7)
  - Respiratory failure [Recovering/Resolving]
  - Coma [Recovering/Resolving]
  - Toxicity to various agents [Recovering/Resolving]
  - Electrocardiogram QRS complex prolonged [Recovering/Resolving]
  - Depressed level of consciousness [Recovering/Resolving]
  - Overdose [Recovering/Resolving]
  - Cardiotoxicity [Recovering/Resolving]
